FAERS Safety Report 9067644 (Version 2)
Quarter: 2013Q1

REPORT INFORMATION
  Report Type: Spontaneous
  Country: FR (occurrence: FR)
  Receive Date: 20130206
  Receipt Date: 20130221
  Transmission Date: 20140127
  Serious: Yes (Hospitalization)
  Sender: FDA-Public Use
  Company Number: FR-PFIZER INC-2013046094

PATIENT
  Age: 40 Year
  Sex: Female

DRUGS (3)
  1. ADVIL [Suspect]
     Dosage: UNK
     Route: 048
     Dates: start: 20120525, end: 20120526
  2. PYOSTACINE [Suspect]
     Dosage: UNK
     Route: 048
     Dates: start: 20120525, end: 20120526
  3. DAFALGAN [Suspect]
     Dosage: UNK
     Route: 048
     Dates: start: 20120525, end: 20120526

REACTIONS (1)
  - Acute generalised exanthematous pustulosis [Recovered/Resolved]
